FAERS Safety Report 8581871-4 (Version None)
Quarter: 2012Q3

REPORT INFORMATION
  Report Type: 
  Country: None (occurrence: None)
  Receive Date: 20120809
  Receipt Date: 20120731
  Transmission Date: 20120928
  Serious: Yes (Other)
  Sender: FDA-Public Use
  Company Number: CA-SANOFI-AVENTIS-2011SA074484

PATIENT
  Sex: Male
  Weight: 2.24 kg

DRUGS (1)
  1. PLAQUENIL [Suspect]
     Route: 064

REACTIONS (3)
  - FOETAL GROWTH RESTRICTION [None]
  - FOETAL EXPOSURE DURING PREGNANCY [None]
  - BONE DISORDER [None]
